FAERS Safety Report 11245211 (Version 14)
Quarter: 2021Q1

REPORT INFORMATION
  Report Type: Spontaneous
  Country: US (occurrence: US)
  Receive Date: 20150707
  Receipt Date: 20210205
  Transmission Date: 20210419
  Serious: No
  Sender: FDA-Public Use
  Company Number: US-PFIZER INC-2015222156

PATIENT
  Age: 48 Year
  Sex: Female
  Weight: 77 kg

DRUGS (2)
  1. RELPAX [Suspect]
     Active Substance: ELETRIPTAN HYDROBROMIDE
     Indication: MIGRAINE
     Dosage: 40 MG, AS NEEDED (1 AT ONSET OF HEADACHE, MAY REPEAT IN 2 HOURS IF NEEDED)
     Route: 048
     Dates: start: 2016
  2. RELPAX [Suspect]
     Active Substance: ELETRIPTAN HYDROBROMIDE
     Indication: HEADACHE
     Dosage: 120 MG, DAILY (THREE OF 40?MG IN A DAY)
     Route: 048

REACTIONS (6)
  - Nightmare [Recovering/Resolving]
  - Tooth disorder [Unknown]
  - Overdose [Unknown]
  - Speech disorder [Recovering/Resolving]
  - Malaise [Unknown]
  - Feeling abnormal [Unknown]
